FAERS Safety Report 7278547-2 (Version None)
Quarter: 2011Q1

REPORT INFORMATION
  Report Type: 
  Country: None (occurrence: None)
  Receive Date: 20110207
  Receipt Date: 20110128
  Transmission Date: 20110831
  Serious: Yes (Death, Hospitalization)
  Sender: FDA-Public Use
  Company Number: PHHY2011JP06791

PATIENT
  Age: 81 Year
  Sex: Male

DRUGS (3)
  1. DOCETAXEL [Suspect]
     Indication: PROSTATE CANCER
     Dosage: 25 MG/M2, QW
     Dates: start: 20071001
  2. DEXAMETHASONE [Suspect]
     Indication: PROSTATE CANCER
     Dosage: 1 MG, DAILY
     Route: 048
     Dates: start: 20071001
  3. ESTRAMUSTINE [Suspect]
     Indication: PROSTATE CANCER
     Dosage: 560 MG, DAILY
     Route: 048
     Dates: start: 20071001

REACTIONS (17)
  - GENERALISED ERYTHEMA [None]
  - HYPOPHAGIA [None]
  - MULTI-ORGAN FAILURE [None]
  - HEPATIC FUNCTION ABNORMAL [None]
  - WEIGHT DECREASED [None]
  - FATIGUE [None]
  - CHOLELITHIASIS [None]
  - LIVER DISORDER [None]
  - DECREASED APPETITE [None]
  - EYE DISCHARGE [None]
  - ANAEMIA [None]
  - INFLAMMATION [None]
  - NICOTINIC ACID DEFICIENCY [None]
  - APHAGIA [None]
  - RENAL IMPAIRMENT [None]
  - NAUSEA [None]
  - RASH [None]
